FAERS Safety Report 16867262 (Version 1)
Quarter: 2019Q4

REPORT INFORMATION
  Report Type: Spontaneous
  Country: US (occurrence: US)
  Receive Date: 20190929
  Receipt Date: 20190929
  Transmission Date: 20200122
  Serious: Yes (Other)
  Sender: FDA-Public Use
  Company Number: None

PATIENT
  Age: 26 Year
  Sex: Female

DRUGS (1)
  1. HERPECIN L [Suspect]
     Active Substance: DIMETHICONE\MERADIMATE\OCTINOXATE\OCTISALATE\OXYBENZONE
     Indication: ORAL HERPES
     Route: 061
     Dates: start: 20190925, end: 20190926

REACTIONS (7)
  - Sunburn [None]
  - Burning sensation [None]
  - Application site swelling [None]
  - Ear infection [None]
  - Herpes zoster [None]
  - Paraesthesia [None]
  - Pain of skin [None]

NARRATIVE: CASE EVENT DATE: 20190925
